FAERS Safety Report 8055755-4 (Version None)
Quarter: 2011Q4

REPORT INFORMATION
  Report Type: 
  Country: None (occurrence: None)
  Receive Date: 20111215
  Receipt Date: 20101221
  Transmission Date: 20120403
  Serious: Yes (Hospitalization)
  Sender: FDA-Public Use
  Company Number: 1000017875

PATIENT
  Age: 81 Year
  Sex: Male

DRUGS (5)
  1. ENALAPRIL (ENALAPRIL) (TABLETS) (ENALAPRIL) [Concomitant]
  2. CRESTOR [Concomitant]
  3. HYDROCHLOROTHIAZIDE [Suspect]
     Indication: HYPERTENSION
     Dosage: 12.5 MG (12.5 MG, 1 IN 1 D), ORAL
     Route: 048
     Dates: start: 20101215, end: 20101215
  4. NAMENDA [Suspect]
     Indication: DEMENTIA ALZHEIMER'S TYPE
     Dosage: 20 MG (10 MG, 2 IN 1 D), ORAL
     Route: 048
     Dates: start: 20100328
  5. METOPROLOL TARTRATE [Concomitant]

REACTIONS (1)
  - BLOOD PRESSURE INCREASED [None]
